FAERS Safety Report 19145512 (Version 1)
Quarter: 2021Q2

REPORT INFORMATION
  Report Type: Spontaneous
  Country: NL (occurrence: NL)
  Receive Date: 20210416
  Receipt Date: 20210416
  Transmission Date: 20210717
  Serious: Yes (Hospitalization)
  Sender: FDA-Public Use
  Company Number: NL-TEVA-2021-NL-1901004

PATIENT
  Sex: Male
  Weight: 79.8 kg

DRUGS (19)
  1. MAGNESIUMHYDROXIDE KAUWTABLET 724MG / BRAND NAME NOT SPECIFIED [Concomitant]
     Dosage: 724 MG,  THERAPY START AND END DATE: ASKU
  2. AMOXICILLINE/CLAVULAANZUUR TABLET 500/125MG / BRAND NAME NOT SPECIFIED [Concomitant]
     Active Substance: AMOXICILLIN\CLAVULANIC ACID
     Dosage: 500/125 MG ,THERAPY START AND END DATE: ASKU
  3. IPRATROPIUM AEROSOL 20UG/DO / BRAND NAME NOT SPECIFIED [Concomitant]
     Dosage: 20 MICROGRAMS PER DOSE, THERAPY START AND END DATE: ASKU
  4. ROSUVASTATINE TABLET 10MG / BRAND NAME NOT SPECIFIED [Concomitant]
     Active Substance: ROSUVASTATIN
     Dosage: 10 MG, THERAPY START AND END DATE: ASKU
  5. ACENOCOUMAROL TABLET 1MG / BRAND NAME NOT SPECIFIED [Concomitant]
     Active Substance: ACENOCOUMAROL
     Dosage: 1 MG ,THERAPY START AND END DATE: ASKU
  6. METOPROLOL TABLET MGA 200MG (TARTRAAT) / BRAND NAME NOT SPECIFIED [Concomitant]
     Active Substance: METOPROLOL TARTRATE
     Dosage: 200 MG, THERAPY START AND END DATE: ASKU
  7. ISOSORBIDEMONONITRAAT TABLET MGA  30MG / PROMOCARD DURETTE TABLET MGA [Concomitant]
     Dosage: 30 MG, THERAPY START AND END DATE: ASKU
  8. BUMETANIDE TABLET 1MG / BRAND NAME NOT SPECIFIED [Concomitant]
     Dosage: 1 MG, THERAPY START AND END DATE: ASKU
  9. TEMAZEPAM CAPSULE 10MG / BRAND NAME NOT SPECIFIED [Concomitant]
     Active Substance: TEMAZEPAM
     Dosage: 10 MG,  THERAPY START AND END DATE: ASKU
  10. METOPROLOL TABLET MGA 100MG (SUCCINAAT) / BRAND NAME NOT SPECIFIED [Concomitant]
     Dosage: 100 MG ,THERAPY START AND END DATE: ASKU
  11. EPLERENON TABLET 25MG / BRAND NAME NOT SPECIFIED [Concomitant]
     Dosage: 25 MG, THERAPY START AND END DATE: ASKU
  12. SALMETEROL AEROSOL 25UG/DO / BRAND NAME NOT SPECIFIED [Concomitant]
     Dosage: 25 MICROGRAMS PER DOSE, THERAPY START AND END DATE: ASKU
  13. SALBUTAMOL VERNEVELVLST 1MG/ML / BRAND NAME NOT SPECIFIED [Concomitant]
     Dosage: 1 MILLIGRAM PER MILLILITER, THERAPY START AND END DATE: ASKU
  14. NITROGLYCERINE SPRAY SUBLING. 0,4MG/DO / BRAND NAME NOT SPECIFIED [Concomitant]
     Dosage: , 0.4 MILLIGRAMS PER DOSE, THERAPY START AND END DATE: ASKU
  15. OMEPRAZOL CAPSULE MSR 40MG / BRAND NAME NOT SPECIFIED [Suspect]
     Active Substance: OMEPRAZOLE
     Indication: PRODUCT USED FOR UNKNOWN INDICATION
     Dosage: 40 MILLIGRAM DAILY;
     Route: 065
     Dates: start: 20130116, end: 20210223
  16. CICLESONIDE AEROSOL 160UG/DO / BRAND NAME NOT SPECIFIED [Concomitant]
     Dosage: AEROSOL, 160 MICROGRAM PER DOSE, THERAPY START AND END DATE: ASKU
  17. ALLOPURINOL TABLET 100MG / BRAND NAME NOT SPECIFIED [Concomitant]
     Active Substance: ALLOPURINOL
     Dosage: 100 MG, THERAPY START AND END DATE: ASKU
  18. FAMOTIDINE TABLET 20MG / BRAND NAME NOT SPECIFIED [Concomitant]
     Dosage: 20 MG, THERAPY START AND END DATE: ASKU
  19. LISINOPRIL TABLET 10MG / BRAND NAME NOT SPECIFIED [Concomitant]
     Active Substance: LISINOPRIL
     Dosage: 10 MG, THERAPY START AND END DATE: ASKU

REACTIONS (4)
  - Hypocalcaemia [Recovered/Resolved]
  - Hypokalaemia [Recovered/Resolved]
  - Ventricular tachycardia [Recovered/Resolved]
  - Hypomagnesaemia [Recovered/Resolved]
